FAERS Safety Report 11779380 (Version 8)
Quarter: 2016Q3

REPORT INFORMATION
  Report Type: Report from Study
  Country: US (occurrence: US)
  Receive Date: 20151125
  Receipt Date: 20160712
  Transmission Date: 20161109
  Serious: Yes (Hospitalization)
  Sender: FDA-Public Use
  Company Number: US-PFIZER INC-2015392193

PATIENT
  Age: 15 Year
  Sex: Female
  Weight: 59 kg

DRUGS (5)
  1. PRISTIQ EXTENDED-RELEASE [Suspect]
     Active Substance: DESVENLAFAXINE SUCCINATE
     Indication: MAJOR DEPRESSION
     Dosage: 25 MG, 1X/DAY
     Route: 048
     Dates: start: 20150904, end: 20150917
  2. PRISTIQ EXTENDED-RELEASE [Suspect]
     Active Substance: DESVENLAFAXINE SUCCINATE
     Dosage: 20 MG, 1X/DAY
     Route: 048
     Dates: start: 20150919, end: 20151113
  3. IBUPROFEN. [Concomitant]
     Active Substance: IBUPROFEN
     Indication: TENSION HEADACHE
  4. IBUPROFEN. [Concomitant]
     Active Substance: IBUPROFEN
     Indication: DYSMENORRHOEA
     Dosage: 400 MG (2 PILLS AT 200 MG STRENGTH), AS NEEDED
     Route: 048
     Dates: end: 20151112
  5. ADVIL PM [Concomitant]
     Active Substance: DIPHENHYDRAMINE CITRATE\IBUPROFEN
     Indication: INITIAL INSOMNIA
     Dosage: 400 MG, 1X/DAY EVERY NIGHT
     Route: 048
     Dates: start: 20151002, end: 20151112

REACTIONS (1)
  - Suicide attempt [Recovered/Resolved]

NARRATIVE: CASE EVENT DATE: 20151109
